FAERS Safety Report 26083420 (Version 1)
Quarter: 2025Q4

REPORT INFORMATION
  Report Type: Spontaneous
  Country: US (occurrence: US)
  Receive Date: 20251124
  Receipt Date: 20251124
  Transmission Date: 20260119
  Serious: Yes (Other)
  Sender: INCYTE
  Company Number: US-INCYTE CORPORATION-2025IN012863

PATIENT
  Age: 82 Year

DRUGS (1)
  1. JAKAFI [Suspect]
     Active Substance: RUXOLITINIB
     Indication: Myeloproliferative neoplasm
     Dosage: UNK
     Route: 065

REACTIONS (3)
  - Platelet count decreased [Unknown]
  - Drug effective for unapproved indication [Unknown]
  - Off label use [Unknown]
